FAERS Safety Report 7081382-1 (Version None)
Quarter: 2010Q4

REPORT INFORMATION
  Report Type: 
  Country: None (occurrence: None)
  Receive Date: 20101103
  Receipt Date: 20101029
  Transmission Date: 20110411
  Serious: Yes (Death)
  Sender: FDA-Public Use
  Company Number: PHHY2010JP72974

PATIENT
  Sex: Female

DRUGS (6)
  1. CERTICAN [Suspect]
     Indication: HEART TRANSPLANT
     Dosage: 1 MG/DAY
     Route: 048
     Dates: start: 20080512, end: 20080603
  2. CERTICAN [Suspect]
     Dosage: 0.5 MG/DAY
     Route: 048
     Dates: start: 20080604
  3. NEORAL [Concomitant]
     Indication: HEART TRANSPLANT
     Dosage: 110 MG
     Route: 048
     Dates: start: 20080311
  4. NEORAL [Concomitant]
     Dosage: 90 MG
     Route: 048
  5. NEORAL [Concomitant]
     Dosage: 80 MG
     Route: 048
  6. NEORAL [Concomitant]
     Dosage: 70 MG
     Route: 048

REACTIONS (5)
  - IMMUNOSUPPRESSANT DRUG LEVEL INCREASED [None]
  - PALLIATIVE CARE [None]
  - PNEUMONIA [None]
  - RENAL FAILURE CHRONIC [None]
  - RENAL IMPAIRMENT [None]
